FAERS Safety Report 11509708 (Version 1)
Quarter: 2015Q3

REPORT INFORMATION
  Report Type: Spontaneous
  Country: US (occurrence: US)
  Receive Date: 20150915
  Receipt Date: 20150915
  Transmission Date: 20151125
  Serious: No
  Sender: FDA-Public Use
  Company Number: US-JNJFOC-20150723463

PATIENT
  Age: 79 Year
  Sex: Female
  Weight: 81.19 kg

DRUGS (2)
  1. TYLENOL ARTHRITIS PAIN [Suspect]
     Active Substance: ACETAMINOPHEN
     Route: 048
  2. TYLENOL ARTHRITIS PAIN [Suspect]
     Active Substance: ACETAMINOPHEN
     Indication: ARTHRITIS
     Dosage: 2 CAPLETS, EVERY 6 HOURS
     Route: 048

REACTIONS (2)
  - Expired product administered [Unknown]
  - Therapeutic response unexpected [Unknown]
